FAERS Safety Report 9407321 (Version 2)
Quarter: 2013Q3

REPORT INFORMATION
  Report Type: Spontaneous
  Country: IE (occurrence: IE)
  Receive Date: 20130718
  Receipt Date: 20130815
  Transmission Date: 20140515
  Serious: Yes (Death, Other)
  Sender: FDA-Public Use
  Company Number: IE-PFIZER INC-2013206835

PATIENT
  Age: 67 Year
  Sex: Male

DRUGS (2)
  1. LYRICA [Suspect]
     Dosage: UNK
  2. AUGMENTIN [Concomitant]
     Dosage: UNK

REACTIONS (3)
  - Sudden cardiac death [Fatal]
  - Psychotic disorder [Fatal]
  - Leukoencephalopathy [Fatal]
